FAERS Safety Report 6907625-X (Version None)
Quarter: 2010Q3

REPORT INFORMATION
  Report Type: 
  Country: None (occurrence: None)
  Receive Date: 20100713
  Receipt Date: 20100301
  Transmission Date: 20110219
  Serious: Yes (Other)
  Sender: FDA-Public Use
  Company Number: 2010-08978

PATIENT
  Age: 42 Year
  Weight: 122.4 kg

DRUGS (4)
  1. CRINONE [Suspect]
     Dosage: 8 %, 1 IN 1 DAYS, VAGINAL, VAGINAL
     Route: 067
     Dates: start: 20100220, end: 20100221
  2. METFORMIN HCL [Concomitant]
  3. SYNTHROID [Concomitant]
  4. COMPOUNDED MICRONIZED PROGESTERONE CAPS [Concomitant]

REACTIONS (2)
  - ABDOMINAL PAIN [None]
  - RASH [None]
